FAERS Safety Report 7565003-7 (Version None)
Quarter: 2011Q2

REPORT INFORMATION
  Report Type: 
  Country: None (occurrence: None)
  Receive Date: 20110622
  Receipt Date: 20110322
  Transmission Date: 20111010
  Serious: Yes (Death)
  Sender: FDA-Public Use
  Company Number: US-MYLANLABS-2011S1006026

PATIENT
  Sex: Male

DRUGS (4)
  1. PRILOSEC [Concomitant]
  2. CARBIDOPA AND LEVODOPA [Concomitant]
     Dosage: 25MG/100MG
  3. CLOZAPINE [Suspect]
     Route: 048
     Dates: start: 20100630
  4. MIDODRINE HYDROCHLORIDE [Concomitant]

REACTIONS (1)
  - CEREBROVASCULAR ACCIDENT [None]
